APPROVED DRUG PRODUCT: ERYTHROMYCIN LACTOBIONATE
Active Ingredient: ERYTHROMYCIN LACTOBIONATE
Strength: EQ 500MG BASE/VIAL
Dosage Form/Route: INJECTABLE;INJECTION
Application: A211086 | Product #001
Applicant: EXELA PHARMA SCIENCES LLC
Approved: Sep 17, 2020 | RLD: No | RS: No | Type: DISCN